FAERS Safety Report 22117470 (Version 2)
Quarter: 2023Q1

REPORT INFORMATION
  Report Type: Report from Study
  Country: IL (occurrence: IL)
  Receive Date: 20230321
  Receipt Date: 20230328
  Transmission Date: 20230418
  Serious: Yes (Death, Hospitalization)
  Sender: FDA-Public Use
  Company Number: IL-ABBVIE-4697177

PATIENT
  Age: 62 Year
  Sex: Male

DRUGS (2)
  1. CARBIDOPA\LEVODOPA [Suspect]
     Active Substance: CARBIDOPA\LEVODOPA
     Indication: Parkinson^s disease
     Route: 050
     Dates: start: 20180715
  2. CARBIDOPA\LEVODOPA [Suspect]
     Active Substance: CARBIDOPA\LEVODOPA
     Dosage: MORNING DOSAGE(ML) 12.0 , CONTINUOUS DOSAGE (ML/H) 3.0 , EXTRA DOSAGE (ML) 2.0
     Route: 050

REACTIONS (4)
  - Death [Fatal]
  - Dysphagia [Unknown]
  - Coronavirus infection [Unknown]
  - Decubitus ulcer [Unknown]

NARRATIVE: CASE EVENT DATE: 20230324
